FAERS Safety Report 16867482 (Version 2)
Quarter: 2019Q3

REPORT INFORMATION
  Report Type: Spontaneous
  Country: US (occurrence: US)
  Receive Date: 20190930
  Receipt Date: 20190930
  Transmission Date: 20191005
  Serious: No
  Sender: FDA-Public Use
  Company Number: US-INDIVIOR LIMITED-INDV-120700-2019

PATIENT
  Age: 37 Year
  Sex: Female

DRUGS (2)
  1. SUBLOCADE [Suspect]
     Active Substance: BUPRENORPHINE
     Indication: DRUG DEPENDENCE
     Dosage: 100 MG QMO
     Route: 065
     Dates: start: 20190717
  2. SUBOXONE [Suspect]
     Active Substance: BUPRENORPHINE HYDROCHLORIDE\NALOXONE HYDROCHLORIDE
     Indication: DRUG DEPENDENCE
     Dosage: 8 MG FILM, UNK
     Route: 048
     Dates: start: 201906

REACTIONS (2)
  - Intentional product use issue [Unknown]
  - Product dispensing issue [Recovered/Resolved]

NARRATIVE: CASE EVENT DATE: 201906
